FAERS Safety Report 22167116 (Version 3)
Quarter: 2025Q2

REPORT INFORMATION
  Report Type: Report from Study
  Country: DE (occurrence: DE)
  Receive Date: 20230403
  Receipt Date: 20250402
  Transmission Date: 20250717
  Serious: Yes (Other)
  Sender: TAKEDA
  Company Number: DE-TAKEDA-2023TUS033621

PATIENT
  Age: 69 Year
  Sex: Male

DRUGS (20)
  1. TEDUGLUTIDE [Suspect]
     Active Substance: TEDUGLUTIDE
     Indication: Short-bowel syndrome
     Dosage: 4.6 MILLIGRAM, QD
     Dates: start: 201803
  2. TEDUGLUTIDE [Suspect]
     Active Substance: TEDUGLUTIDE
  3. TEDUGLUTIDE [Suspect]
     Active Substance: TEDUGLUTIDE
  4. TEDUGLUTIDE [Suspect]
     Active Substance: TEDUGLUTIDE
  5. COLESEVELAM HYDROCHLORIDE [Concomitant]
     Active Substance: COLESEVELAM HYDROCHLORIDE
     Indication: Hypercholesterolaemia
     Dosage: 625 MILLIGRAM, QD
     Dates: start: 20230307
  6. CHOLECALCIFEROL [Concomitant]
     Active Substance: CHOLECALCIFEROL
     Indication: Vitamin D deficiency
     Dosage: 20000 INTERNATIONAL UNIT, QD
     Dates: start: 20220714
  7. ESOMEPRAZOLE [Concomitant]
     Active Substance: ESOMEPRAZOLE
     Indication: Gastrointestinal disorder prophylaxis
     Dosage: 40 MILLIGRAM, QD
     Dates: start: 20210621
  8. DEXAMETHASONE [Concomitant]
     Active Substance: DEXAMETHASONE
     Indication: Back pain
     Dosage: 4 MILLIGRAM, BID
     Dates: start: 20240803, end: 20240823
  9. Cortison [Concomitant]
     Indication: Back pain
     Dosage: 999 MILLIGRAM, QD
     Dates: start: 20240814
  10. FORMOTEROL [Concomitant]
     Active Substance: FORMOTEROL
     Indication: Dyspnoea
  11. IBUPROFEN [Concomitant]
     Active Substance: IBUPROFEN
     Indication: Systemic infection
     Dosage: 999 MILLIGRAM, TID
     Dates: start: 20240820
  12. AZITHROMYCIN [Concomitant]
     Active Substance: AZITHROMYCIN
     Indication: Systemic infection
     Dates: start: 20240827, end: 20240830
  13. PANCRELIPASE [Concomitant]
     Active Substance: PANCRELIPASE
     Indication: Crohn^s disease
     Dosage: 40000 MILLIGRAM, QID
     Dates: start: 201901
  14. OXYCODONE [Concomitant]
     Active Substance: OXYCODONE
     Indication: Pain
     Dosage: 10 MILLIGRAM, BID
     Dates: start: 2019
  15. LEVOTHYROXINE SODIUM [Concomitant]
     Active Substance: LEVOTHYROXINE SODIUM
     Indication: Thyroidectomy
     Dosage: 100 MICROGRAM, QD
     Dates: start: 201501
  16. PANTOPRAZOLE SODIUM [Concomitant]
     Active Substance: PANTOPRAZOLE SODIUM
     Indication: Gastrointestinal disorder prophylaxis
     Dosage: 40 MILLIGRAM, QD
     Dates: start: 201912
  17. REMICADE [Concomitant]
     Active Substance: INFLIXIMAB
     Indication: Crohn^s disease
  18. USTEKINUMAB [Concomitant]
     Active Substance: USTEKINUMAB
     Indication: Crohn^s disease
  19. ALPRAZOLAM [Concomitant]
     Active Substance: ALPRAZOLAM
     Indication: Anxiety
     Dosage: 0.5 MILLIGRAM, QD
     Dates: start: 20210621
  20. Postericort [Concomitant]
     Indication: Anal injury
     Route: 061

REACTIONS (1)
  - Basal cell carcinoma [Not Recovered/Not Resolved]

NARRATIVE: CASE EVENT DATE: 20220601
